FAERS Safety Report 7235519-1 (Version None)
Quarter: 2011Q1

REPORT INFORMATION
  Report Type: 
  Country: None (occurrence: None)
  Receive Date: 20110120
  Receipt Date: 20110107
  Transmission Date: 20110831
  Serious: Yes (Hospitalization, Other)
  Sender: FDA-Public Use
  Company Number: FR-ELI_LILLY_AND_COMPANY-FR201101002772

PATIENT
  Sex: Male

DRUGS (12)
  1. PEMETREXED [Suspect]
     Indication: LUNG NEOPLASM MALIGNANT
     Dates: start: 20071120
  2. PLAVIX [Concomitant]
     Dosage: UNK, UNK
     Dates: start: 20040901
  3. SOLUPRED [Concomitant]
     Dates: start: 20071120
  4. NEULASTA [Concomitant]
     Indication: LUNG NEOPLASM MALIGNANT
     Dates: start: 20071109
  5. SPECIAFOLDINE [Concomitant]
     Dates: start: 20070901
  6. RIVOTRIL [Concomitant]
     Dates: start: 20071101
  7. PRIMPERAN TAB [Concomitant]
     Dates: start: 20071120
  8. DEPAKENE [Concomitant]
     Dosage: UNK, UNK
     Dates: start: 20071101
  9. ENDOTELON                          /00811401/ [Concomitant]
     Dates: start: 20040101
  10. SIMVASTATIN [Concomitant]
     Dates: start: 20040101
  11. ZOPHREN [Concomitant]
     Dates: start: 20071120
  12. CORTICOSTEROIDS [Concomitant]

REACTIONS (1)
  - ANGIOEDEMA [None]
